FAERS Safety Report 5446220-9 (Version None)
Quarter: 2007Q3

REPORT INFORMATION
  Report Type: 
  Country: None (occurrence: None)
  Receive Date: 20070907
  Receipt Date: 20070829
  Transmission Date: 20080115
  Serious: Yes (Hospitalization)
  Sender: FDA-Public Use
  Company Number: US-TYCO HEALTHCARE/MALLINCKRODT-T200701009

PATIENT

DRUGS (3)
  1. METHADOSE [Suspect]
     Dosage: 10 MG, UNK
  2. MORPHINE [Suspect]
  3. BENZODIAZEPINE DERIVATIVES [Suspect]

REACTIONS (3)
  - ACCIDENTAL OVERDOSE [None]
  - RESPIRATORY FAILURE [None]
  - UNRESPONSIVE TO STIMULI [None]
